FAERS Safety Report 5653534-6 (Version None)
Quarter: 2008Q1

REPORT INFORMATION
  Report Type: 
  Country: None (occurrence: None)
  Receive Date: 20080131
  Receipt Date: 20071113
  Transmission Date: 20080703
  Serious: No
  Sender: FDA-Public Use
  Company Number: US200710002393

PATIENT
  Age: 80 Year
  Sex: Female
  Weight: 90.7 kg

DRUGS (11)
  1. BYETTA [Suspect]
     Indication: WEIGHT CONTROL
     Dosage: 5 UG, 2/D, SUBCUTANEOUS ; 10 UG, 2/D, SUBCUTANEOUS
     Route: 058
     Dates: start: 20051206, end: 20060105
  2. BYETTA [Suspect]
     Indication: WEIGHT CONTROL
     Dosage: 5 UG, 2/D, SUBCUTANEOUS ; 10 UG, 2/D, SUBCUTANEOUS
     Route: 058
     Dates: start: 20060105
  3. AVANDIA [Concomitant]
  4. DARVOCET [Concomitant]
  5. DIOVAN (HYDROCHLOROTHIAZIDE, VALSARTAN) [Concomitant]
  6. FEMARA [Concomitant]
  7. GLIPIZIDE [Concomitant]
  8. KLOR-CON [Concomitant]
  9. LEVEMIR (INSULIN DETEMIR) [Concomitant]
  10. VERAPAMIL [Concomitant]
  11. TOPROL-XL [Concomitant]

REACTIONS (5)
  - BLOOD GLUCOSE INCREASED [None]
  - DRUG INEFFECTIVE [None]
  - FALL [None]
  - FOOT FRACTURE [None]
  - NAUSEA [None]
